FAERS Safety Report 14076892 (Version 2)
Quarter: 2017Q4

REPORT INFORMATION
  Report Type: Spontaneous
  Country: ES (occurrence: ES)
  Receive Date: 20171011
  Receipt Date: 20171213
  Transmission Date: 20180321
  Serious: Yes (Other)
  Sender: FDA-Public Use
  Company Number: ES-ELI_LILLY_AND_COMPANY-ES201710001790

PATIENT
  Age: 55 Year
  Sex: Female

DRUGS (1)
  1. TALTZ [Suspect]
     Active Substance: IXEKIZUMAB
     Indication: PSORIASIS
     Dosage: UNK UNK, UNKNOWN
     Route: 065
     Dates: start: 20170509, end: 2017

REACTIONS (7)
  - Anxiety [Not Recovered/Not Resolved]
  - Dry mouth [Unknown]
  - Arthralgia [Not Recovered/Not Resolved]
  - Neutrophilic dermatosis [Recovered/Resolved]
  - Psoriasis [Unknown]
  - Pyrexia [Unknown]
  - Dyspnoea [Unknown]

NARRATIVE: CASE EVENT DATE: 2017
